FAERS Safety Report 14877574 (Version 2)
Quarter: 2018Q3

REPORT INFORMATION
  Report Type: Spontaneous
  Country: US (occurrence: US)
  Receive Date: 20180510
  Receipt Date: 20180706
  Transmission Date: 20181010
  Serious: Yes (Hospitalization, Other)
  Sender: FDA-Public Use
  Company Number: US-ALLERGAN-1825099US

PATIENT
  Age: 64 Year
  Sex: Female
  Weight: 76 kg

DRUGS (2)
  1. MORPHINE SULFATE UNK [Suspect]
     Active Substance: MORPHINE SULFATE
     Indication: PAIN
     Dosage: UNK
     Route: 065
     Dates: start: 2018, end: 2018
  2. MORPHINE SULFATE UNK [Suspect]
     Active Substance: MORPHINE SULFATE
     Dosage: 15 MG, PRN
     Route: 065
     Dates: start: 20180312, end: 20180316

REACTIONS (5)
  - Bladder outlet obstruction [Recovered/Resolved]
  - Intestinal metastasis [Unknown]
  - Abdominal pain [Not Recovered/Not Resolved]
  - Bladder cancer [Unknown]
  - Off label use [Unknown]

NARRATIVE: CASE EVENT DATE: 2018
